FAERS Safety Report 20946787 (Version 4)
Quarter: 2025Q3

REPORT INFORMATION
  Report Type: Spontaneous
  Country: US (occurrence: US)
  Receive Date: 20220610
  Receipt Date: 20250710
  Transmission Date: 20251021
  Serious: Yes (Death, Hospitalization, Other)
  Sender: JAZZ
  Company Number: US-GW PHARMA-202111USGW05933

PATIENT
  Sex: Male
  Weight: 32.653 kg

DRUGS (2)
  1. EPIDIOLEX [Suspect]
     Active Substance: CANNABIDIOL
     Indication: Lennox-Gastaut syndrome
     Dosage: 25.73 MG/KG/DAY, 840 MILLIGRAM, QD
     Route: 048
     Dates: start: 20210908
  2. EPIDIOLEX [Suspect]
     Active Substance: CANNABIDIOL
     Route: 048
     Dates: start: 20200829

REACTIONS (4)
  - Death [Fatal]
  - Hospitalisation [Unknown]
  - Hospice care [Unknown]
  - Prescribed overdose [Unknown]

NARRATIVE: CASE EVENT DATE: 20210101
